FAERS Safety Report 5474386-3 (Version None)
Quarter: 2007Q3

REPORT INFORMATION
  Report Type: 
  Country: None (occurrence: None)
  Receive Date: 20070904
  Receipt Date: 20070329
  Transmission Date: 20080115
  Serious: Yes (Other)
  Sender: FDA-Public Use
  Company Number: 152547USA

PATIENT
  Age: 60 Year
  Sex: Female
  Weight: 77.1115 kg

DRUGS (3)
  1. BACLOFEN [Suspect]
     Indication: MUSCLE SPASMS
     Dosage: QID PRN (20 MG)
     Dates: start: 20060817
  2. BACLOFEN [Suspect]
     Indication: MUSCLE SPASTICITY
     Dosage: QID PRN (20 MG)
     Dates: start: 20060817
  3. BACLOFEN [Suspect]
     Indication: PAIN IN EXTREMITY
     Dosage: QID PRN (20 MG)
     Dates: start: 20060817

REACTIONS (17)
  - ABASIA [None]
  - ACTIVITIES OF DAILY LIVING IMPAIRED [None]
  - ASTHENIA [None]
  - BACK PAIN [None]
  - CONTUSION [None]
  - FALL [None]
  - HALLUCINATION [None]
  - HEAD INJURY [None]
  - HEADACHE [None]
  - JOINT DISLOCATION [None]
  - LOSS OF CONSCIOUSNESS [None]
  - MENTAL IMPAIRMENT [None]
  - MUSCULOSKELETAL PAIN [None]
  - NECK PAIN [None]
  - PAIN [None]
  - ROAD TRAFFIC ACCIDENT [None]
  - SOMNOLENCE [None]
